FAERS Safety Report 9824327 (Version 3)
Quarter: 2015Q3

REPORT INFORMATION
  Report Type: Spontaneous
  Country: US (occurrence: US)
  Receive Date: 20140116
  Receipt Date: 20150807
  Transmission Date: 20151125
  Serious: No
  Sender: FDA-Public Use
  Company Number: US-GILEAD-2011-0039454

PATIENT
  Age: 69 Year
  Sex: Female

DRUGS (19)
  1. PROPAFENONE. [Concomitant]
     Active Substance: PROPAFENONE
  2. PARACETAMOL/HYDROCODONE BITARTRATE [Concomitant]
  3. LEVOTHYROXINE. [Concomitant]
     Active Substance: LEVOTHYROXINE
  4. SIMVASTATIN. [Concomitant]
     Active Substance: SIMVASTATIN
  5. TRAVATAN [Concomitant]
     Active Substance: TRAVOPROST
  6. VITAMIN C [Concomitant]
     Active Substance: ASCORBIC ACID
  7. VITAMIN D [Concomitant]
     Active Substance: CHOLECALCIFEROL
  8. LETAIRIS [Suspect]
     Active Substance: AMBRISENTAN
     Indication: PULMONARY HYPERTENSION
     Route: 048
     Dates: start: 20110223, end: 20110501
  9. AZOPT [Concomitant]
     Active Substance: BRINZOLAMIDE
  10. KCL [Concomitant]
     Active Substance: POTASSIUM CHLORIDE
  11. CENTRUM SILVER [Concomitant]
     Active Substance: VITAMINS
  12. WARFARIN [Concomitant]
     Active Substance: WARFARIN
  13. METOPROLOL [Concomitant]
     Active Substance: METOPROLOL
  14. AMLODIPINE [Concomitant]
     Active Substance: AMLODIPINE BESYLATE
  15. CALCIUM + D [Concomitant]
     Active Substance: CALCIUM\VITAMIN D
  16. FISH OIL [Concomitant]
     Active Substance: FISH OIL
  17. PRILOSEC [Concomitant]
     Active Substance: OMEPRAZOLE MAGNESIUM
  18. AMOXICILLIN. [Concomitant]
     Active Substance: AMOXICILLIN
  19. LASIX [Concomitant]
     Active Substance: FUROSEMIDE

REACTIONS (1)
  - Dyspnoea [Recovered/Resolved with Sequelae]

NARRATIVE: CASE EVENT DATE: 201102
